FAERS Safety Report 6214154-8 (Version None)
Quarter: 2009Q2

REPORT INFORMATION
  Report Type: 
  Country: None (occurrence: None)
  Receive Date: 20090604
  Receipt Date: 20090601
  Transmission Date: 20091009
  Serious: Yes (Hospitalization)
  Sender: FDA-Public Use
  Company Number: US-BRISTOL-MYERS SQUIBB COMPANY-14110845

PATIENT
  Age: 78 Year
  Sex: Male
  Weight: 76 kg

DRUGS (17)
  1. COUMADIN [Suspect]
     Indication: ATRIAL FIBRILLATION
     Route: 048
     Dates: start: 20071212, end: 20080221
  2. AXITINIB [Interacting]
     Route: 048
     Dates: start: 20080211, end: 20080220
  3. PLACEBO [Interacting]
     Route: 048
     Dates: start: 20080211, end: 20080220
  4. GEMCITABINE [Concomitant]
     Indication: PANCREATIC CARCINOMA
     Dosage: CUMULATIVE DOSE: 4000 MG.
     Route: 042
     Dates: start: 20080211, end: 20080218
  5. MIRALAX [Concomitant]
     Route: 048
     Dates: start: 20080114
  6. ACETAMINOPHEN AND HYDROCODONE BITARTRATE [Concomitant]
     Route: 048
     Dates: start: 20071128
  7. KLOR-CON [Concomitant]
     Route: 048
     Dates: start: 20070718
  8. DOXAZOSIN MESYLATE [Concomitant]
     Route: 048
     Dates: start: 20071219
  9. METOPROLOL SUCCINATE [Concomitant]
     Route: 048
     Dates: start: 20071120
  10. LISINOPRIL [Concomitant]
     Route: 048
     Dates: start: 20071219, end: 20080218
  11. FUROSEMIDE [Concomitant]
     Route: 048
     Dates: start: 20080111
  12. DIGOXIN [Concomitant]
     Route: 048
     Dates: start: 20080111
  13. MESALAZINE [Concomitant]
     Route: 048
     Dates: start: 20080102
  14. MEGESTROL ACETATE [Concomitant]
     Route: 048
     Dates: start: 20080118
  15. DECADRON [Concomitant]
     Route: 042
     Dates: start: 20080211
  16. ANZEMET [Concomitant]
     Route: 042
     Dates: start: 20080211
  17. REGLAN [Concomitant]
     Route: 048
     Dates: start: 20080208

REACTIONS (4)
  - ASTHENIA [None]
  - DRUG INTERACTION [None]
  - INTERNATIONAL NORMALISED RATIO INCREASED [None]
  - RECTAL HAEMORRHAGE [None]
